FAERS Safety Report 7537757-7 (Version None)
Quarter: 2011Q2

REPORT INFORMATION
  Report Type: 
  Country: None (occurrence: None)
  Receive Date: 20110609
  Receipt Date: 20110526
  Transmission Date: 20111010
  Serious: Yes (Other)
  Sender: FDA-Public Use
  Company Number: CA-JNJFOC-20110512864

PATIENT
  Sex: Male
  Weight: 71 kg

DRUGS (3)
  1. REMICADE [Suspect]
     Indication: CROHN'S DISEASE
     Dosage: 100 MG/VIAL
     Route: 042
     Dates: start: 20060101
  2. CORTISONE ACETATE [Concomitant]
     Indication: SWELLING
     Route: 050
  3. CORTISONE ACETATE [Concomitant]
     Indication: PAIN
     Route: 050

REACTIONS (1)
  - ARTHRITIS [None]
